FAERS Safety Report 16151671 (Version 1)
Quarter: 2019Q2

REPORT INFORMATION
  Report Type: Spontaneous
  Country: FR (occurrence: FR)
  Receive Date: 20190403
  Receipt Date: 20190403
  Transmission Date: 20190711
  Serious: Yes (Hospitalization)
  Sender: FDA-Public Use
  Company Number: FR-EISAI MEDICAL RESEARCH-EC-2019-054096

PATIENT
  Age: 60 Year
  Sex: Male
  Weight: 78 kg

DRUGS (10)
  1. FORLAX [Suspect]
     Active Substance: POLYETHYLENE GLYCOL 4000
     Indication: CONSTIPATION
     Dosage: DOSE AND FREQUENCY UNKNOWN
     Route: 048
     Dates: start: 20181120, end: 20181123
  2. PARIET [Suspect]
     Active Substance: RABEPRAZOLE SODIUM
     Indication: ABDOMINAL PAIN
     Route: 048
     Dates: start: 20181120, end: 20181123
  3. MOPRAL [Suspect]
     Active Substance: OMEPRAZOLE
     Indication: ABDOMINAL PAIN
     Route: 048
     Dates: start: 20181115, end: 20181119
  4. PERMIXON [Suspect]
     Active Substance: HERBALS\SAW PALMETTO
     Indication: PROSTATIC ADENOMA
     Route: 048
     Dates: start: 20181115, end: 20181121
  5. AERIUS (DESLORATADINE) [Suspect]
     Active Substance: DESLORATADINE
     Indication: ABDOMINAL PAIN
     Route: 048
     Dates: start: 20181122, end: 20181123
  6. SPASFON (PHLOROGLUCINOL/TRIMETHYLPHLOROGLUCINOL) [Suspect]
     Active Substance: PHLOROGLUCINOL\1,3,5-TRIMETHOXYBENZENE
     Indication: ABDOMINAL PAIN
     Dosage: DOSE AND FREQUENCY UNKNOWN
     Route: 048
     Dates: start: 20181120, end: 20181123
  7. BACTRIM [Suspect]
     Active Substance: SULFAMETHOXAZOLE\TRIMETHOPRIM
     Indication: PROSTATITIS
     Route: 048
     Dates: start: 20181115, end: 20181122
  8. GAVISCON [Suspect]
     Active Substance: ALUMINUM HYDROXIDE\MAGNESIUM CARBONATE
     Indication: ABDOMINAL PAIN
     Dosage: DOSE AND FREQUENCY UNKNOWN
     Route: 048
     Dates: start: 20181120, end: 20181123
  9. ESOMEPRAZOLE. [Suspect]
     Active Substance: ESOMEPRAZOLE MAGNESIUM
     Indication: PRODUCT USED FOR UNKNOWN INDICATION
     Dosage: DOSE AND FREQUENCY UNKNOWN
     Route: 048
     Dates: start: 20181113
  10. COLOPEG [Suspect]
     Active Substance: POLYETHYLENE GLYCOL 3350\POTASSIUM CHLORIDE\SODIUM BICARBONATE\SODIUM CHLORIDE\SODIUM SULFATE
     Indication: ABDOMINAL PAIN
     Dosage: DOSE AND FREQUENCY UNKNOWN
     Route: 048
     Dates: start: 20181122

REACTIONS (1)
  - Rash maculo-papular [Recovered/Resolved]

NARRATIVE: CASE EVENT DATE: 20181123
